FAERS Safety Report 6736056-0 (Version None)
Quarter: 2010Q2

REPORT INFORMATION
  Report Type: 
  Country: None (occurrence: None)
  Receive Date: 20100521
  Receipt Date: 20100511
  Transmission Date: 20101027
  Serious: Yes (Other)
  Sender: FDA-Public Use
  Company Number: AU-PFIZER INC-2010058783

PATIENT
  Sex: Female

DRUGS (1)
  1. LYRICA [Suspect]
     Indication: FIBROMYALGIA

REACTIONS (6)
  - CRYING [None]
  - DEPRESSION [None]
  - DIZZINESS [None]
  - HALLUCINATION, VISUAL [None]
  - MALAISE [None]
  - SUICIDAL IDEATION [None]
